FAERS Safety Report 6477917-X (Version None)
Quarter: 2009Q4

REPORT INFORMATION
  Report Type: 
  Country: None (occurrence: None)
  Receive Date: 20091207
  Receipt Date: 20091201
  Transmission Date: 20100525
  Serious: Yes (Congenital Anomaly)
  Sender: FDA-Public Use
  Company Number: A0677482A

PATIENT
  Sex: Female
  Weight: 3 kg

DRUGS (10)
  1. PAXIL [Suspect]
     Indication: STRESS
     Dates: start: 19970101, end: 20010905
  2. PAXIL CR [Suspect]
     Indication: ANXIETY
     Dates: start: 19970101, end: 20010905
  3. VITAMIN TAB [Concomitant]
     Dates: start: 19970101, end: 19980101
  4. CLEOCIN [Concomitant]
     Dates: start: 19980101
  5. CHROMAGEN [Concomitant]
  6. PANMIST JR [Concomitant]
     Dates: start: 19980301
  7. ZITHROMAX [Concomitant]
     Dates: start: 19980301
  8. HYDROCODONE BITARTRATE AND ACETAMINOPHEN [Concomitant]
     Dates: start: 19980401
  9. MACROBID [Concomitant]
     Dates: start: 19980401
  10. METROGEL [Concomitant]
     Dates: start: 19980401

REACTIONS (5)
  - CARDIAC MURMUR [None]
  - DRUG EXPOSURE DURING PREGNANCY [None]
  - SINUS ARRHYTHMIA [None]
  - SPINA BIFIDA OCCULTA [None]
  - VENTRICULAR SEPTAL DEFECT [None]
